FAERS Safety Report 8840891 (Version 1)
Quarter: 2012Q4

REPORT INFORMATION
  Report Type: Report from Study
  Country: US (occurrence: US)
  Receive Date: 20121015
  Receipt Date: 20121015
  Transmission Date: 20130627
  Serious: Yes (Disabling, Other)
  Sender: FDA-Public Use
  Company Number: US-ROCHE-1102732

PATIENT
  Age: 68 Year
  Sex: Female

DRUGS (14)
  1. RITUXIMAB [Suspect]
     Indication: RHEUMATOID ARTHRITIS
     Route: 042
     Dates: start: 20120606, end: 20120619
  2. RITUXIMAB [Suspect]
     Route: 042
     Dates: start: 201206, end: 201208
  3. PREDNISONE [Concomitant]
     Route: 065
  4. PREDNISONE [Concomitant]
     Route: 065
  5. PREDNISONE [Concomitant]
     Route: 065
  6. IRON SUPPLEMENT [Concomitant]
     Route: 065
  7. BENADRYL [Concomitant]
     Route: 065
  8. ESTROPIPATE [Concomitant]
     Route: 048
  9. DONNATAL [Concomitant]
     Route: 065
  10. BIFERA [Concomitant]
     Route: 048
  11. LISINOPRIL [Concomitant]
     Dosage: 20/125 mg
     Route: 065
  12. LYRICA [Concomitant]
     Indication: NEURALGIA
     Route: 065
  13. ARAVA [Concomitant]
     Route: 065
  14. PERCOCET [Concomitant]
     Indication: PAIN
     Route: 065

REACTIONS (13)
  - Psoriasis [Not Recovered/Not Resolved]
  - Oral pruritus [Recovered/Resolved]
  - Urticaria [Unknown]
  - Paraesthesia oral [Unknown]
  - Visual impairment [Unknown]
  - Disturbance in attention [Unknown]
  - Skin ulcer [Unknown]
  - Anaemia [Unknown]
  - Blood glucose increased [Unknown]
  - Pruritus [Unknown]
  - Ulcer [Unknown]
  - Skin ulcer [Unknown]
  - Illusion [Unknown]
